FAERS Safety Report 6640777-8 (Version None)
Quarter: 2010Q1

REPORT INFORMATION
  Report Type: 
  Country: None (occurrence: None)
  Receive Date: 20100318
  Receipt Date: 20100308
  Transmission Date: 20100710
  Serious: Yes (Other)
  Sender: FDA-Public Use
  Company Number: GB-PFIZER INC-2010020472

PATIENT
  Age: 41 Year
  Sex: Female
  Weight: 109.6 kg

DRUGS (3)
  1. CHAMPIX [Suspect]
     Indication: SMOKING CESSATION THERAPY
     Dosage: UNK
     Route: 048
     Dates: start: 20100116, end: 20100125
  2. AMOXICILLIN [Concomitant]
     Indication: TOOTH DISORDER
     Dosage: 500 MG, 3X/DAY
     Route: 048
     Dates: start: 20091124, end: 20091124
  3. CLOTRIMAZOLE [Concomitant]
     Indication: CANDIDIASIS
     Dosage: 1 DF, 1X/DAY
     Route: 061
     Dates: start: 20091124, end: 20091126

REACTIONS (7)
  - DECREASED APPETITE [None]
  - DELIRIUM [None]
  - MENTAL IMPAIRMENT [None]
  - PYREXIA [None]
  - SENSORY LOSS [None]
  - THINKING ABNORMAL [None]
  - WEIGHT DECREASED [None]
